FAERS Safety Report 9401138 (Version 1)
Quarter: 2013Q3

REPORT INFORMATION
  Report Type: Spontaneous
  Country: US (occurrence: US)
  Receive Date: 20130715
  Receipt Date: 20130715
  Transmission Date: 20140515
  Serious: Yes (Other)
  Sender: FDA-Public Use
  Company Number: US-COVIDIEN/TYCO HEALTHCARE/MALLINCKRODT-T201303612

PATIENT
  Age: 24 Year
  Sex: Male

DRUGS (2)
  1. GABLOFEN [Suspect]
     Indication: MUSCLE SPASTICITY
     Route: 037
  2. BACLOFEN [Concomitant]
     Route: 048

REACTIONS (6)
  - Overdose [Unknown]
  - Underdose [Unknown]
  - Lethargy [Unknown]
  - Unresponsive to stimuli [Unknown]
  - Muscle spasticity [Unknown]
  - Drug administration error [Unknown]
